FAERS Safety Report 5725421-6 (Version None)
Quarter: 2008Q2

REPORT INFORMATION
  Report Type: 
  Country: None (occurrence: None)
  Receive Date: 20080501
  Receipt Date: 20080423
  Transmission Date: 20081010
  Serious: Yes (Other)
  Sender: FDA-Public Use
  Company Number: US-PFIZER INC-2008035749

PATIENT
  Sex: Female
  Weight: 83.9 kg

DRUGS (6)
  1. CADUET [Suspect]
     Indication: HYPERTENSION
     Dosage: TEXT:10/20MG QD EVERYDAY TDD:10/20MG
  2. CADUET [Suspect]
     Indication: BLOOD CHOLESTEROL INCREASED
  3. CYMBALTA [Concomitant]
  4. NEXIUM [Concomitant]
  5. SYNTHROID [Concomitant]
  6. HYDROCHLOROTHIAZIDE [Concomitant]

REACTIONS (1)
  - COELIAC DISEASE [None]
